FAERS Safety Report 5525912-7 (Version None)
Quarter: 2007Q4

REPORT INFORMATION
  Report Type: 
  Country: None (occurrence: None)
  Receive Date: 20071126
  Receipt Date: 20071120
  Transmission Date: 20080405
  Serious: Yes (Death)
  Sender: FDA-Public Use
  Company Number: BY-PFIZER INC-2007094240

PATIENT
  Age: 57 Year
  Sex: Female

DRUGS (1)
  1. FRAGMIN [Suspect]
     Indication: THROMBOSIS PROPHYLAXIS
     Route: 058
     Dates: start: 20071002, end: 20071004

REACTIONS (3)
  - HAEMORRHAGE [None]
  - PROCEDURAL COMPLICATION [None]
  - PULMONARY EMBOLISM [None]
